FAERS Safety Report 23866788 (Version 1)
Quarter: 2024Q2

REPORT INFORMATION
  Report Type: Spontaneous
  Country: CA (occurrence: CA)
  Receive Date: 20240517
  Receipt Date: 20240517
  Transmission Date: 20240716
  Serious: Yes (Other)
  Sender: FDA-Public Use
  Company Number: CA-TEVA-VS-3183588

PATIENT
  Age: 23 Year
  Sex: Female
  Weight: 69 kg

DRUGS (4)
  1. METHOTREXATE SODIUM [Suspect]
     Active Substance: METHOTREXATE SODIUM
     Indication: Product used for unknown indication
     Route: 058
  2. HYDROXYCHLOROQUINE SULFATE [Concomitant]
     Active Substance: HYDROXYCHLOROQUINE SULFATE
     Route: 065
  3. PREDNISONE [Concomitant]
     Active Substance: PREDNISONE
     Route: 065
  4. SULFASALAZINE [Concomitant]
     Active Substance: SULFASALAZINE
     Route: 065

REACTIONS (5)
  - Arthralgia [Unknown]
  - Condition aggravated [Unknown]
  - Depression [Unknown]
  - Joint swelling [Unknown]
  - Off label use [Unknown]
